FAERS Safety Report 7105689-4 (Version None)
Quarter: 2010Q4

REPORT INFORMATION
  Report Type: 
  Country: None (occurrence: None)
  Receive Date: 20101116
  Receipt Date: 20101103
  Transmission Date: 20110411
  Serious: Yes (Hospitalization, Other)
  Sender: FDA-Public Use
  Company Number: PHHY2010PL75046

PATIENT
  Age: 72 Year
  Sex: Female

DRUGS (8)
  1. DICLOFENAC SODIUM [Suspect]
     Indication: ARTHRALGIA
     Dosage: 100 MG DAILY
  2. METFORMIN HCL [Interacting]
     Indication: TYPE 2 DIABETES MELLITUS
     Dosage: 1500 MG DAILY
  3. NAPROXEN [Interacting]
     Indication: ARTHRALGIA
     Dosage: 250 MG, BID
  4. NAPROXEN [Interacting]
     Dosage: 1000 MG DAILY
  5. GLIMEPIRIDE [Interacting]
     Indication: TYPE 2 DIABETES MELLITUS
     Dosage: 3 MG DAILY
  6. RAMIPRIL [Concomitant]
     Indication: HYPERTENSION
     Dosage: 5 MG DAILY
  7. AMLODIPINE [Concomitant]
     Indication: HYPERTENSION
     Dosage: 5 MG DAILY
  8. ACETAMINOPHEN AND TRAMADOL HCL [Concomitant]
     Dosage: UNK

REACTIONS (10)
  - ALTERED STATE OF CONSCIOUSNESS [None]
  - CONFUSIONAL STATE [None]
  - DRUG INTERACTION [None]
  - FEELING COLD [None]
  - HYPERHIDROSIS [None]
  - HYPOGLYCAEMIA [None]
  - HYPOKALAEMIA [None]
  - PALLOR [None]
  - PSYCHOMOTOR SKILLS IMPAIRED [None]
  - TACHYCARDIA [None]
